FAERS Safety Report 9878106 (Version 3)
Quarter: 2014Q3

REPORT INFORMATION
  Report Type: Spontaneous
  Country: US (occurrence: US)
  Receive Date: 20140206
  Receipt Date: 20140929
  Transmission Date: 20150326
  Serious: Yes (Hospitalization, Other)
  Sender: FDA-Public Use
  Company Number: US-009507513-1402USA002079

PATIENT
  Sex: Female

DRUGS (2)
  1. NUVARING [Suspect]
     Active Substance: ETHINYL ESTRADIOL\ETONOGESTREL
     Indication: MENSTRUATION IRREGULAR
     Dosage: UNK
     Route: 067
  2. NUVARING [Suspect]
     Active Substance: ETHINYL ESTRADIOL\ETONOGESTREL
     Indication: OVARIAN CYST

REACTIONS (14)
  - Migraine [Unknown]
  - Appendicectomy [Unknown]
  - Hypothyroidism [Unknown]
  - Off label use [Unknown]
  - Back disorder [Unknown]
  - Uterine dilation and curettage [Unknown]
  - Mobility decreased [Unknown]
  - Peptic ulcer [Unknown]
  - Anxiety disorder [Unknown]
  - Pulmonary embolism [Unknown]
  - Gastric bypass [Unknown]
  - Cholecystectomy [Unknown]
  - Depression [Unknown]
  - Back pain [Unknown]

NARRATIVE: CASE EVENT DATE: 2003
